FAERS Safety Report 6817112-5 (Version None)
Quarter: 2010Q3

REPORT INFORMATION
  Report Type: 
  Country: None (occurrence: None)
  Receive Date: 20100706
  Receipt Date: 20100625
  Transmission Date: 20110219
  Serious: Yes (Death, Hospitalization)
  Sender: FDA-Public Use
  Company Number: BE-ROCHE-711845

PATIENT
  Sex: Male

DRUGS (1)
  1. ROACTEMRA [Suspect]
     Indication: RHEUMATOID ARTHRITIS
     Dosage: FREQUENCY: : EVERY MORNING
     Route: 042
     Dates: start: 20091201

REACTIONS (3)
  - CARDIAC ARREST [None]
  - PNEUMONIA [None]
  - SEPTIC SHOCK [None]
